FAERS Safety Report 6633761-1 (Version None)
Quarter: 2010Q1

REPORT INFORMATION
  Report Type: 
  Country: None (occurrence: None)
  Receive Date: 20100315
  Receipt Date: 20100305
  Transmission Date: 20100710
  Serious: Yes (Hospitalization)
  Sender: FDA-Public Use
  Company Number: US-BIOGENIDEC-2010BI007919

PATIENT
  Age: 39 Year
  Sex: Female

DRUGS (2)
  1. AVONEX [Suspect]
     Indication: MULTIPLE SCLEROSIS
     Route: 030
     Dates: start: 20040323
  2. REBIF [Concomitant]
     Indication: MULTIPLE SCLEROSIS
     Dates: start: 20050501

REACTIONS (7)
  - AMNESIA [None]
  - BALANCE DISORDER [None]
  - FALL [None]
  - FATIGUE [None]
  - GALLBLADDER OPERATION [None]
  - HYPOAESTHESIA [None]
  - POST PROCEDURAL BILE LEAK [None]
